FAERS Safety Report 5122629-8 (Version None)
Quarter: 2006Q4

REPORT INFORMATION
  Report Type: 
  Country: None (occurrence: None)
  Receive Date: 20061005
  Receipt Date: 20061005
  Transmission Date: 20070319
  Serious: Yes (Hospitalization)
  Sender: FDA-Public Use
  Company Number: None

PATIENT
  Age: 55 Year
  Sex: Male
  Weight: 89 kg

DRUGS (13)
  1. WARFARIN SODIUM [Suspect]
     Indication: ATRIAL FIBRILLATION
     Dosage: 2.5MG DAILY PO
     Route: 048
     Dates: start: 20050621, end: 20060802
  2. WARFARIN SODIUM [Suspect]
     Indication: CORONARY ARTERY DISEASE
     Dosage: 2.5MG DAILY PO
     Route: 048
     Dates: start: 20050621, end: 20060802
  3. ALLOPURINOL [Concomitant]
  4. ASPIRIN [Concomitant]
  5. CALCITRIOL [Concomitant]
  6. CYCLOSPORINE [Concomitant]
  7. DOCUSATE [Concomitant]
  8. EZETIMIBE/SIMVASTATIN [Concomitant]
  9. METHADONE HCL [Concomitant]
  10. METOPROLOL TARTRATE [Concomitant]
  11. OMEPRAZOLE [Concomitant]
  12. PREDNISONE TAB [Concomitant]
  13. SENNOSIDES [Concomitant]

REACTIONS (5)
  - ATRIAL FIBRILLATION [None]
  - INTERNATIONAL NORMALISED RATIO INCREASED [None]
  - PNEUMONIA [None]
  - RETROPERITONEAL HAEMORRHAGE [None]
  - TREATMENT NONCOMPLIANCE [None]
